FAERS Safety Report 8535115-X (Version None)
Quarter: 2012Q3

REPORT INFORMATION
  Report Type: 
  Country: None (occurrence: None)
  Receive Date: 20120724
  Receipt Date: 20120718
  Transmission Date: 20120928
  Serious: Yes (Death, Hospitalization, Other)
  Sender: FDA-Public Use
  Company Number: US-PFIZER INC-2012159271

PATIENT
  Sex: Male
  Weight: 64.853 kg

DRUGS (11)
  1. PAROXETINE [Concomitant]
     Indication: DEPRESSION
     Dosage: 20 MG, 1X/DAY
  2. LASIX [Concomitant]
     Indication: PULMONARY HYPERTENSION
     Dosage: 40 MG, 1X/DAY
  3. REVATIO [Suspect]
     Indication: PULMONARY HYPERTENSION
     Dosage: 40 MG, 3X/DAY
     Route: 048
     Dates: start: 20120501
  4. CARDIAZEM LA [Concomitant]
     Indication: PULMONARY HYPERTENSION
     Dosage: 180 MG, 1X/DAY
  5. PREDNISONE [Concomitant]
     Indication: ANAEMIA HAEMOLYTIC AUTOIMMUNE
     Dosage: 5 MG, 1X/DAY
  6. DUONEB [Concomitant]
     Indication: SARCOIDOSIS
     Dosage: UNK, AS NEEDED
  7. TRAZODONE [Concomitant]
     Indication: SLEEP DISORDER
     Dosage: 50 MG, 1X/DAY
  8. ASPIRIN [Concomitant]
     Dosage: 81 MG, 1X/DAY
  9. SIMVASTATIN [Concomitant]
     Indication: BLOOD CHOLESTEROL INCREASED
     Dosage: 20 MG, 1X/DAY
  10. PLAVIX [Concomitant]
     Dosage: 75 MG, 1X/DAY
  11. PROTONIX [Concomitant]
     Indication: GASTROOESOPHAGEAL REFLUX DISEASE
     Dosage: 20 MG, 1X/DAY

REACTIONS (6)
  - PULMONARY EMBOLISM [None]
  - PULSELESS ELECTRICAL ACTIVITY [None]
  - LOWER LIMB FRACTURE [None]
  - HAEMOGLOBIN DECREASED [None]
  - OFF LABEL USE [None]
  - DEEP VEIN THROMBOSIS [None]
